FAERS Safety Report 4525906-4 (Version None)
Quarter: 2004Q4

REPORT INFORMATION
  Report Type: 
  Country: None (occurrence: None)
  Receive Date: 20041213
  Receipt Date: 20041129
  Transmission Date: 20050328
  Serious: Yes (Other)
  Sender: FDA-Public Use
  Company Number: PHBS2004US16264

PATIENT
  Age: 14 Year
  Sex: Male

DRUGS (7)
  1. CYCLOSPORINE [Suspect]
     Indication: RENAL TRANSPLANT
     Dosage: 150 MG/D
  2. AZATHIOPRINE [Concomitant]
     Dosage: 50 MG/D
  3. PREDNISONE [Suspect]
     Indication: RENAL TRANSPLANT
     Dosage: 30 MG EVERY OTHER DAY
  4. HUMAN GROWTH HORMONE, RECOMBINANT [Suspect]
     Dosage: 0.5 MG/KG/D
  5. ATENOLOL [Concomitant]
     Dosage: 100 MG/D
  6. CHLOROTHIAZIDE [Concomitant]
     Dosage: 500 MG/D
  7. DILTIAZEM [Concomitant]
     Dosage: 120 MG/D

REACTIONS (6)
  - CSF PRESSURE INCREASED [None]
  - HEADACHE [None]
  - INTRACRANIAL PRESSURE INCREASED [None]
  - PAPILLOEDEMA [None]
  - VISUAL ACUITY REDUCED [None]
  - VOMITING [None]
